FAERS Safety Report 8881237 (Version 2)
Quarter: 2012Q4

REPORT INFORMATION
  Report Type: 
  Country: JP (occurrence: JP)
  Receive Date: 20121031
  Receipt Date: 20121106
  Transmission Date: 20130627
  Serious: Yes (Other)
  Sender: FDA-Public Use
  Company Number: JP-NAPPMUNDI-GBR-2012-0011872

PATIENT
  Age: 64 Year
  Sex: Female

DRUGS (3)
  1. OXYCODONE [Suspect]
     Indication: TUMOUR PAIN
     Dosage: 20 mg, daily
     Route: 048
     Dates: start: 20121018
  2. OXYCODONE [Suspect]
     Dosage: 30 mg, daily
     Route: 048
     Dates: start: 20121012
  3. OXYCODONE [Suspect]
     Dosage: 20 mg, daily
     Route: 048
     Dates: start: 20120401, end: 20121012

REACTIONS (2)
  - Delirium [Recovering/Resolving]
  - Hallucination [Recovering/Resolving]
